FAERS Safety Report 7224756-8 (Version None)
Quarter: 2011Q1

REPORT INFORMATION
  Report Type: 
  Country: None (occurrence: None)
  Receive Date: 20110106
  Receipt Date: 20110106
  Transmission Date: 20110831
  Serious: Yes (Other)
  Sender: FDA-Public Use
  Company Number: None

PATIENT
  Age: 35 Year
  Sex: Female
  Weight: 81.6475 kg

DRUGS (10)
  1. CYMBALTA [Suspect]
     Indication: TENSION HEADACHE
     Dosage: 60MG QAM PO  : 30MG QAM FOR 1 WEEK PO
     Route: 048
     Dates: start: 20100530, end: 20101128
  2. CYMBALTA [Suspect]
     Indication: MYALGIA
     Dosage: 60MG QAM PO  : 30MG QAM FOR 1 WEEK PO
     Route: 048
     Dates: start: 20100530, end: 20101128
  3. CYMBALTA [Suspect]
     Indication: TENSION HEADACHE
     Dosage: 60MG QAM PO  : 30MG QAM FOR 1 WEEK PO
     Route: 048
     Dates: start: 20101215, end: 20101231
  4. CYMBALTA [Suspect]
     Indication: MYALGIA
     Dosage: 60MG QAM PO  : 30MG QAM FOR 1 WEEK PO
     Route: 048
     Dates: start: 20101215, end: 20101231
  5. VITAMIN D [Concomitant]
  6. ZANAFLEX [Concomitant]
  7. VIACTIV CALCIUM CHEWS [Concomitant]
  8. VITAMIN B COMPLEX [Concomitant]
  9. ZYRTEC [Concomitant]
  10. TRAZODONE HCL [Concomitant]

REACTIONS (11)
  - FEELING JITTERY [None]
  - DRUG WITHDRAWAL SYNDROME [None]
  - EMOTIONAL DISORDER [None]
  - HYPOAESTHESIA [None]
  - HYPOMANIA [None]
  - HYPERACUSIS [None]
  - TREMOR [None]
  - EUPHORIC MOOD [None]
  - NEUROLOGICAL SYMPTOM [None]
  - AGITATION [None]
  - ANGER [None]
